FAERS Safety Report 4713894-7 (Version None)
Quarter: 2005Q3

REPORT INFORMATION
  Report Type: 
  Country: None (occurrence: None)
  Receive Date: 20050713
  Receipt Date: 20050627
  Transmission Date: 20060218
  Serious: Yes (Congenital Anomaly)
  Sender: FDA-Public Use
  Company Number: 2005-0008417

PATIENT
  Sex: Male
  Weight: 2.668 kg

DRUGS (7)
  1. VIREAD [Suspect]
     Indication: HIV INFECTION
     Dosage: 300 MG, 1 IN 1 D, TRANSPLACENTAL
     Route: 064
     Dates: start: 20021101, end: 20041216
  2. TRIZIVIR [Suspect]
     Indication: HIV INFECTION
     Dosage: 1 IN 1 D, TRANSPLACENTAL
     Route: 064
     Dates: start: 20021101, end: 20041216
  3. COMBIVIR [Concomitant]
  4. VIRACEPT [Concomitant]
  5. AZT [Concomitant]
  6. METRONIDAZOLE [Concomitant]
  7. MULTIVITAMIN [Concomitant]

REACTIONS (2)
  - DRUG EXPOSURE DURING PREGNANCY [None]
  - POLYDACTYLY [None]
